FAERS Safety Report 5292044-5 (Version None)
Quarter: 2007Q2

REPORT INFORMATION
  Report Type: 
  Country: None (occurrence: None)
  Receive Date: 20070406
  Receipt Date: 20070406
  Transmission Date: 20071010
  Serious: Yes (Other)
  Sender: FDA-Public Use
  Company Number: None

PATIENT
  Sex: Female

DRUGS (1)
  1. ABILIFY [Suspect]
     Indication: MOOD ALTERED
     Dosage: 2 MG BID PO
     Route: 048
     Dates: start: 20070319, end: 20070324

REACTIONS (1)
  - DYSTONIA [None]
